FAERS Safety Report 14854482 (Version 1)
Quarter: 2018Q2

REPORT INFORMATION
  Report Type: Spontaneous
  Country: TW (occurrence: TW)
  Receive Date: 20180507
  Receipt Date: 20180507
  Transmission Date: 20180711
  Serious: Yes (Other)
  Sender: FDA-Public Use
  Company Number: TW-PFIZER INC-2018181846

PATIENT
  Age: 51 Year
  Sex: Female

DRUGS (2)
  1. AFINITOR [Concomitant]
     Active Substance: EVEROLIMUS
     Indication: BREAST CANCER
     Dosage: UNK
     Dates: start: 201612, end: 201702
  2. AROMASIN [Suspect]
     Active Substance: EXEMESTANE
     Indication: BREAST CANCER
     Dosage: UNK
     Dates: start: 201612, end: 201702

REACTIONS (3)
  - Carbohydrate antigen 15-3 increased [Unknown]
  - Interstitial lung disease [Unknown]
  - Carcinoembryonic antigen increased [Unknown]
